FAERS Safety Report 4330838-0 (Version None)
Quarter: 2004Q1

REPORT INFORMATION
  Report Type: 
  Country: None (occurrence: None)
  Receive Date: 20040331
  Receipt Date: 20040311
  Transmission Date: 20041129
  Serious: Yes (Hospitalization)
  Sender: FDA-Public Use
  Company Number: USA040361836

PATIENT
  Age: 12 Year
  Sex: Male
  Weight: 45 kg

DRUGS (2)
  1. STRATTERA [Suspect]
     Indication: ATTENTION DEFICIT/HYPERACTIVITY DISORDER
     Dosage: 120 MG DAY
     Dates: start: 20030801
  2. SEROQUEL [Concomitant]

REACTIONS (7)
  - AFFECTIVE DISORDER [None]
  - ANGER [None]
  - DEPRESSION [None]
  - INTENTIONAL SELF-INJURY [None]
  - MALAISE [None]
  - TREMOR [None]
  - VOMITING [None]
